FAERS Safety Report 7051924-0 (Version None)
Quarter: 2010Q4

REPORT INFORMATION
  Report Type: 
  Country: None (occurrence: None)
  Receive Date: 20101019
  Receipt Date: 20101013
  Transmission Date: 20110411
  Serious: Yes (Hospitalization)
  Sender: FDA-Public Use
  Company Number: FR-BRACCO-000399

PATIENT
  Sex: Male

DRUGS (10)
  1. ZOCOR [Concomitant]
     Dosage: GIVEN TO REDUCE LDLS TO 1 GR
     Route: 048
  2. IOPAMIDOL [Suspect]
     Indication: ARTERIOGRAM CORONARY
     Route: 042
     Dates: start: 20100308, end: 20100308
  3. KARDEGIC [Concomitant]
     Route: 048
  4. KARDEGIC [Concomitant]
     Route: 048
  5. PLAVIX [Concomitant]
     Dosage: IN THE MORNING
     Route: 048
  6. LEXOMIL [Concomitant]
     Dosage: 1/4 CAPSULE IN THE EVENING
  7. OGAST [Concomitant]
     Dosage: EVENING
  8. LAMICTAL [Concomitant]
     Route: 048
  9. ZOFENOPRIL [Concomitant]
  10. HEPARIN CALCIUM [Suspect]
     Indication: X-RAY
     Route: 042
     Dates: start: 20100308, end: 20100308

REACTIONS (1)
  - INTRACARDIAC THROMBUS [None]
